FAERS Safety Report 19232556 (Version 1)
Quarter: 2021Q2

REPORT INFORMATION
  Report Type: Report from Study
  Country: CA (occurrence: CA)
  Receive Date: 20210507
  Receipt Date: 20210507
  Transmission Date: 20210717
  Serious: Yes (Death)
  Sender: FDA-Public Use
  Company Number: CA-JNJFOC-20210303490

PATIENT
  Sex: Male

DRUGS (8)
  1. TRAZODONE [Concomitant]
     Active Substance: TRAZODONE HYDROCHLORIDE
  2. UPTRAVI [Suspect]
     Active Substance: SELEXIPAG
     Indication: PULMONARY HYPERTENSION
     Route: 048
     Dates: start: 20200831
  3. ASA [Concomitant]
     Active Substance: ASPIRIN
  4. BOSENTAN. [Concomitant]
     Active Substance: BOSENTAN
  5. SILDENAFIL. [Concomitant]
     Active Substance: SILDENAFIL
  6. K+10 [Concomitant]
  7. MELATONIN [Concomitant]
     Active Substance: MELATONIN
  8. FUROSEMIDE. [Concomitant]
     Active Substance: FUROSEMIDE

REACTIONS (1)
  - Death [Fatal]
